FAERS Safety Report 6735719-0 (Version None)
Quarter: 2010Q2

REPORT INFORMATION
  Report Type: 
  Country: None (occurrence: None)
  Receive Date: 20100521
  Receipt Date: 20100513
  Transmission Date: 20101027
  Serious: Yes (Hospitalization)
  Sender: FDA-Public Use
  Company Number: A0785079A

PATIENT
  Age: 64 Year
  Sex: Female
  Weight: 57.3 kg

DRUGS (1)
  1. AVANDIA [Suspect]
     Dosage: 4MG PER DAY
     Route: 065
     Dates: start: 20040601, end: 20070601

REACTIONS (1)
  - MYOCARDIAL INFARCTION [None]
